FAERS Safety Report 5272028-3 (Version None)
Quarter: 2007Q1

REPORT INFORMATION
  Report Type: 
  Country: None (occurrence: None)
  Receive Date: 20061214
  Receipt Date: 20060120
  Transmission Date: 20070707
  Serious: Yes (Other)
  Sender: FDA-Public Use
  Company Number: 2006027762

PATIENT
  Age: 52 Year
  Sex: Female
  Weight: 76.2043 kg

DRUGS (14)
  1. BEXTRA [Suspect]
     Indication: ARTHRALGIA
     Dosage: 40 MG (20 MG,2 IN 1 D)
     Dates: start: 20040924, end: 20041002
  2. BEXTRA [Suspect]
     Indication: ARTHROSCOPIC SURGERY
     Dosage: 40 MG (20 MG,2 IN 1 D)
     Dates: start: 20040924, end: 20041002
  3. HYDROCODONE (HYDROCODONE) [Concomitant]
  4. PULMICORT [Concomitant]
  5. PAXIL [Concomitant]
  6. CEFZIL (CEFPROZIIL) [Concomitant]
  7. TRAZODONE HCL [Concomitant]
  8. FLONASE [Concomitant]
  9. ADVAIR DISKUS 100/50 [Concomitant]
  10. ALBUTEROL [Concomitant]
  11. PHENERGAN WITH CODEINE (CHLOROFORM, CITRIC ACID, CODEINE PHOSPHATE, IP [Concomitant]
  12. VICODIN [Concomitant]
  13. NAPROXEN [Concomitant]
  14. ESTROVEN (HERBAL NOS, MINERALS NOS, SOY ISOFLAVONES, VITAMINS NOS) [Concomitant]

REACTIONS (5)
  - DRUG HYPERSENSITIVITY [None]
  - HERPES ZOSTER [None]
  - PRURITUS [None]
  - RASH ERYTHEMATOUS [None]
  - URTICARIA [None]
